FAERS Safety Report 25364758 (Version 1)
Quarter: 2025Q2

REPORT INFORMATION
  Report Type: Spontaneous
  Country: FR (occurrence: FR)
  Receive Date: 20250527
  Receipt Date: 20250527
  Transmission Date: 20250716
  Serious: Yes (Other)
  Sender: MYLAN
  Company Number: None

PATIENT
  Age: 30 Year
  Sex: Female

DRUGS (8)
  1. TRAMADOL [Suspect]
     Active Substance: TRAMADOL
     Indication: Product used for unknown indication
     Dosage: 300 MILLIGRAM, QD
     Dates: start: 2016
  2. TRAMADOL [Suspect]
     Active Substance: TRAMADOL
     Dosage: 300 MILLIGRAM, QD
     Route: 048
     Dates: start: 2016
  3. TRAMADOL [Suspect]
     Active Substance: TRAMADOL
     Dosage: 300 MILLIGRAM, QD
     Route: 048
     Dates: start: 2016
  4. TRAMADOL [Suspect]
     Active Substance: TRAMADOL
     Dosage: 300 MILLIGRAM, QD
     Dates: start: 2016
  5. HERBALS\MITRAGYNINE [Concomitant]
     Active Substance: HERBALS\MITRAGYNINE
  6. HERBALS\MITRAGYNINE [Concomitant]
     Active Substance: HERBALS\MITRAGYNINE
     Route: 065
  7. HERBALS\MITRAGYNINE [Concomitant]
     Active Substance: HERBALS\MITRAGYNINE
     Route: 065
  8. HERBALS\MITRAGYNINE [Concomitant]
     Active Substance: HERBALS\MITRAGYNINE

REACTIONS (2)
  - Drug dependence [Recovering/Resolving]
  - Drug withdrawal maintenance therapy [Recovering/Resolving]

NARRATIVE: CASE EVENT DATE: 20160101
